FAERS Safety Report 25383808 (Version 1)
Quarter: 2025Q2

REPORT INFORMATION
  Report Type: Spontaneous
  Country: US (occurrence: US)
  Receive Date: 20250602
  Receipt Date: 20250602
  Transmission Date: 20250716
  Serious: No
  Sender: Haleon PLC
  Company Number: US-HALEON-2244773

PATIENT

DRUGS (1)
  1. NICODERM CQ [Suspect]
     Active Substance: NICOTINE
     Indication: Ex-tobacco user

REACTIONS (3)
  - Therapeutic product effect decreased [Unknown]
  - Product adhesion issue [Unknown]
  - Product physical issue [Unknown]
